FAERS Safety Report 13586668 (Version 2)
Quarter: 2017Q3

REPORT INFORMATION
  Report Type: Spontaneous
  Country: ES (occurrence: ES)
  Receive Date: 20170526
  Receipt Date: 20170906
  Transmission Date: 20171127
  Serious: Yes (Death)
  Sender: FDA-Public Use
  Company Number: ES-CELGENEUS-144-50794-14080878

PATIENT

DRUGS (1)
  1. AZACITIDINE. [Suspect]
     Active Substance: AZACITIDINE
     Indication: MYELODYSPLASTIC SYNDROME
     Route: 065
     Dates: start: 20070915, end: 20131201

REACTIONS (10)
  - Pseudomonas infection [Unknown]
  - Systemic candida [Unknown]
  - Escherichia infection [Unknown]
  - Pyrexia [Unknown]
  - Pneumonia [Unknown]
  - Urinary tract infection [Unknown]
  - Bronchopulmonary aspergillosis [Unknown]
  - Myelodysplastic syndrome [Fatal]
  - Respiratory tract infection [Unknown]
  - Infection [Fatal]
